FAERS Safety Report 6203588-3 (Version None)
Quarter: 2009Q2

REPORT INFORMATION
  Report Type: 
  Country: None (occurrence: None)
  Receive Date: 20090522
  Receipt Date: 20090522
  Transmission Date: 20091009
  Serious: Yes (Hospitalization)
  Sender: FDA-Public Use
  Company Number: None

PATIENT
  Age: 60 Year
  Sex: Female
  Weight: 71.6683 kg

DRUGS (1)
  1. ESTRADOT TRANSDERMAL PATCH 50 NOVARTIS PHARMA CANADA INC. [Suspect]
     Indication: MENOPAUSAL SYMPTOMS
     Dosage: 0.780 MG ESTRADIOL APPLY TWICE WEEKLY TRANSDERMAL
     Route: 062
     Dates: start: 20090326, end: 20090521

REACTIONS (1)
  - NAUSEA [None]
